FAERS Safety Report 8906797 (Version 1)
Quarter: 2012Q4

REPORT INFORMATION
  Report Type: Report from Study
  Country: CA (occurrence: CA)
  Receive Date: 20121114
  Receipt Date: 20121114
  Transmission Date: 20130627
  Serious: Yes (Other)
  Sender: FDA-Public Use
  Company Number: CA-JNJFOC-20121101996

PATIENT
  Sex: Female
  Weight: 58 kg

DRUGS (4)
  1. REMICADE [Suspect]
     Indication: CROHN^S DISEASE
     Route: 042
     Dates: start: 200604
  2. METOPROLOL [Concomitant]
     Route: 065
  3. PROMETRIUM [Concomitant]
     Route: 065
  4. PREDNISONE [Concomitant]
     Route: 065

REACTIONS (2)
  - Aphthous stomatitis [Unknown]
  - Uveitis [Recovering/Resolving]
